FAERS Safety Report 25061226 (Version 5)
Quarter: 2025Q3

REPORT INFORMATION
  Report Type: Report from Study
  Country: CA (occurrence: CA)
  Receive Date: 20250310
  Receipt Date: 20250809
  Transmission Date: 20251021
  Serious: Yes (Other)
  Sender: ALEXION PHARMACEUTICALS
  Company Number: CA-AstraZeneca-CH-00823153A

PATIENT
  Age: 51 Year
  Sex: Male

DRUGS (8)
  1. SOLIRIS [Suspect]
     Active Substance: ECULIZUMAB
     Indication: Paroxysmal nocturnal haemoglobinuria
     Dosage: 600 MILLIGRAM, QW
     Dates: start: 20190607, end: 20190629
  2. SOLIRIS [Suspect]
     Active Substance: ECULIZUMAB
     Dosage: 900 MILLIGRAM, Q2W
     Dates: start: 20190712, end: 20231124
  3. SOLIRIS [Suspect]
     Active Substance: ECULIZUMAB
     Dosage: 600 MILLIGRAM, QW
     Dates: start: 20240607
  4. IPTACOPAN [Suspect]
     Active Substance: IPTACOPAN
     Route: 065
  5. PENICILLIN V [Concomitant]
     Active Substance: PENICILLIN V
     Indication: Infection prophylaxis
     Dosage: 500 MILLIGRAM, BID
  6. PEGCETACOPLAN [Concomitant]
     Active Substance: PEGCETACOPLAN
     Indication: Paroxysmal nocturnal haemoglobinuria
     Route: 065
  7. DEFERASIROX [Concomitant]
     Active Substance: DEFERASIROX
     Dosage: 1080 MILLIGRAM, QD
     Route: 065
     Dates: start: 202312
  8. FOLIC ACID [Concomitant]
     Active Substance: FOLIC ACID
     Dosage: 1 MILLIGRAM, QD

REACTIONS (5)
  - Haemoglobinuria [Recovering/Resolving]
  - Intravascular haemolysis [Unknown]
  - Influenza like illness [Unknown]
  - Fatigue [Recovering/Resolving]
  - Malaise [Unknown]

NARRATIVE: CASE EVENT DATE: 20250101
